FAERS Safety Report 6579131-6 (Version None)
Quarter: 2010Q1

REPORT INFORMATION
  Report Type: 
  Country: None (occurrence: None)
  Receive Date: 20100203
  Receipt Date: 20100122
  Transmission Date: 20100710
  Serious: Yes (Other)
  Sender: FDA-Public Use
  Company Number: 2010AL000604

PATIENT
  Age: 73 Year
  Sex: Female

DRUGS (16)
  1. METOCLOPRAMIDE [Suspect]
     Dosage: 10 MG; TID; PO
     Route: 048
     Dates: end: 20031210
  2. PROCHLORPERAZINE [Concomitant]
  3. FUROSEMIDE [Concomitant]
  4. GLICLAZIDE [Concomitant]
  5. AMILORIDE HYDROCHLORIDE [Concomitant]
  6. ROSIGLITAZONE [Concomitant]
  7. ISMN [Concomitant]
  8. DILTIAZEM HCL [Concomitant]
  9. CANDESARTAN [Concomitant]
  10. WARFARIN SODIUM [Concomitant]
  11. METOLAZONE [Concomitant]
  12. RABEPRAZOLE SODIUM [Concomitant]
  13. BECOTIDE [Concomitant]
  14. SEREVENT [Concomitant]
  15. ALBUTEROL [Concomitant]
  16. ASPIRIN [Concomitant]

REACTIONS (6)
  - ANXIETY [None]
  - ATRIAL FIBRILLATION [None]
  - EXTRAPYRAMIDAL DISORDER [None]
  - MOBILITY DECREASED [None]
  - MULTIPLE DRUG OVERDOSE [None]
  - TREMOR [None]
